FAERS Safety Report 21356785 (Version 4)
Quarter: 2022Q4

REPORT INFORMATION
  Report Type: Report from Study
  Country: AT (occurrence: AT)
  Receive Date: 20220920
  Receipt Date: 20221129
  Transmission Date: 20230113
  Serious: Yes (Life-Threatening, Hospitalization, Disabling, Other)
  Sender: FDA-Public Use
  Company Number: AT-ABBVIE-4127255

PATIENT
  Age: 73 Year
  Sex: Male
  Weight: 72 kg

DRUGS (12)
  1. HUMIRA [Suspect]
     Active Substance: ADALIMUMAB
     Indication: Colitis ulcerative
     Route: 058
     Dates: start: 20140303, end: 20190211
  2. JARDIANCE [Concomitant]
     Active Substance: EMPAGLIFLOZIN
     Indication: Type 2 diabetes mellitus
     Dosage: ONGOING
     Route: 048
     Dates: start: 201512
  3. OLEOVIT [Concomitant]
     Indication: Vitamin D deficiency
     Dosage: ONGOING
     Route: 048
     Dates: start: 201512
  4. PENTASA RETARD [Concomitant]
     Indication: Colitis ulcerative
     Dosage: ONGOING
     Route: 048
     Dates: start: 201302
  5. NOVORAPID [Concomitant]
     Active Substance: INSULIN ASPART
     Indication: Type 2 diabetes mellitus
     Dosage: TIME INTERVAL: 0.33333333 DAYS: ONGOING, IU
     Route: 058
     Dates: start: 2008
  6. FENOFIBRATE\SIMVASTATIN [Concomitant]
     Active Substance: FENOFIBRATE\SIMVASTATIN
     Indication: Hypercholesterolaemia
     Dosage: ONGOING,145/40 MG
     Route: 048
  7. TRESIBA [Concomitant]
     Active Substance: INSULIN DEGLUDEC
     Indication: Type 2 diabetes mellitus
     Dosage: ON DEMAND IU, ONGOING
     Route: 058
     Dates: start: 202102
  8. EUTHYROX [Concomitant]
     Active Substance: LEVOTHYROXINE SODIUM
     Indication: Hypothyroidism
     Dosage: ONGOING
     Route: 048
     Dates: start: 202111
  9. SALOFALK [Concomitant]
     Indication: Colitis ulcerative
     Dosage: TIME INTERVAL: 0.33333333 DAYS: ONGOING
     Route: 054
     Dates: start: 202111
  10. PREDNISOLONE [Concomitant]
     Active Substance: PREDNISOLONE
     Indication: Colitis ulcerative
     Dosage: ONGOING,TAPERING
     Route: 048
     Dates: start: 202202
  11. SALOFALK KLYSMA [Concomitant]
     Indication: Colitis ulcerative
     Dosage: ONGOING
     Route: 054
     Dates: start: 202202
  12. ENTYVIO [Concomitant]
     Active Substance: VEDOLIZUMAB
     Indication: Colitis ulcerative
     Route: 041
     Dates: start: 20220424, end: 202207

REACTIONS (1)
  - Biliary obstruction [Not Recovered/Not Resolved]

NARRATIVE: CASE EVENT DATE: 20220627
